FAERS Safety Report 15536668 (Version 1)
Quarter: 2018Q4

REPORT INFORMATION
  Report Type: Report from Study
  Country: US (occurrence: US)
  Receive Date: 20181022
  Receipt Date: 20181022
  Transmission Date: 20190205
  Serious: Yes (Other)
  Sender: FDA-Public Use
  Company Number: PHHY2018US124114

PATIENT
  Sex: Female

DRUGS (3)
  1. GLEEVEC [Suspect]
     Active Substance: IMATINIB MESYLATE
     Indication: LEUKAEMIA
     Dosage: UNK
     Route: 065
     Dates: start: 201803
  2. JAKAFI [Suspect]
     Active Substance: RUXOLITINIB
     Dosage: UNK
     Route: 065
     Dates: start: 201803
  3. JAKAFI [Suspect]
     Active Substance: RUXOLITINIB
     Indication: POLYCYTHAEMIA VERA
     Dosage: UNK
     Route: 065

REACTIONS (11)
  - Decreased activity [Unknown]
  - Red blood cell count increased [Unknown]
  - Feeling cold [Unknown]
  - Haemoglobin decreased [Unknown]
  - Asthenia [Unknown]
  - Splenomegaly [Unknown]
  - Therapeutic response unexpected [Unknown]
  - Myelofibrosis [Unknown]
  - Leukaemia [Unknown]
  - Fatigue [Unknown]
  - Weight increased [Unknown]
